FAERS Safety Report 12108837 (Version 1)
Quarter: 2016Q1

REPORT INFORMATION
  Report Type: Report from Study
  Country: US (occurrence: US)
  Receive Date: 20160224
  Receipt Date: 20160224
  Transmission Date: 20160526
  Serious: Yes (Hospitalization)
  Sender: FDA-Public Use
  Company Number: US-009507513-1602USA009720

PATIENT
  Age: 20 Year
  Sex: Female
  Weight: 63.58 kg

DRUGS (13)
  1. VP-16 [Suspect]
     Active Substance: ETOPOSIDE
     Dosage: 100 MG/M2; OVER 2 HOURS ON DAYS 4 AND 5
     Route: 042
     Dates: end: 20151002
  2. LUPRON [Suspect]
     Active Substance: LEUPROLIDE ACETATE
     Dosage: UNK
  3. CRIZOTINIB [Suspect]
     Active Substance: CRIZOTINIB
     Indication: ANAPLASTIC LARGE CELL LYMPHOMA T- AND NULL-CELL TYPES
     Dosage: 165 MG/M2; BID ON DAYS 1-21; TOTAL DOSE ADMINISTERED THIS COURSE WAS 10750 MG
     Route: 048
     Dates: start: 20151020, end: 20151110
  4. LEUCOVORIN. [Suspect]
     Active Substance: LEUCOVORIN
     Dosage: UNK
  5. CYTARABINE. [Suspect]
     Active Substance: CYTARABINE
     Dosage: 150 MG/M2; OVER 1-30 MINUTES Q12 HOURS ON DAYS 4 AND 5 (TOTAL 4 DOSES)
     Route: 042
     Dates: end: 20151002
  6. DEXAMETHASONE. [Suspect]
     Active Substance: DEXAMETHASONE
     Indication: ANAPLASTIC LARGE CELL LYMPHOMA T- AND NULL-CELL TYPES
     Dosage: 5 MG/M2; ONCE DAILY ON DAYS 1-2, AND 5 MG/M2; TWICE DAILY (BID) ON DAYS 3-5
     Route: 048
  7. DOXORUBICIN HYDROCHLORIDE. [Suspect]
     Active Substance: DOXORUBICIN HYDROCHLORIDE
     Dosage: TOTAL DOSE ADMINISTERED THIS COURSE WAS 88 MG
     Dates: start: 20151023, end: 20151024
  8. IFOSFAMIDE. [Suspect]
     Active Substance: IFOSFAMIDE
     Dosage: 800 MG/M2;OVER 60 MIN ON DAYS 1-5
     Route: 042
     Dates: end: 20151002
  9. METHOTREXATE SODIUM. [Suspect]
     Active Substance: METHOTREXATE SODIUM
     Dosage: 3000 MG/M2; OVER 3 HOURS ON DAY 1; TOTAL DOSE ADMINISTERED THIS COURSE WAS 53000 MG
     Route: 042
     Dates: start: 20151020, end: 20151020
  10. CYTARABINE. [Suspect]
     Active Substance: CYTARABINE
     Dosage: 15-24 MG; ON DAY 1 (AGE BASED DOSING)
     Route: 037
  11. DEXAMETHASONE. [Suspect]
     Active Substance: DEXAMETHASONE
     Dosage: 5MG/M2; BID ON DAYS 1-5; TOTAL DOSE ADMINISTERED THIS COURSE WAS 87.5 MG
     Route: 048
     Dates: start: 20151020, end: 20151025
  12. METHOTREXATE SODIUM. [Suspect]
     Active Substance: METHOTREXATE SODIUM
     Indication: ANAPLASTIC LARGE CELL LYMPHOMA T- AND NULL-CELL TYPES
     Dosage: 7.5-12MG IT ON DAY 1 (AGE BASED DOSING)
     Route: 037
  13. CYCLOPHOSPHAMIDE. [Suspect]
     Active Substance: CYCLOPHOSPHAMIDE
     Dosage: TOTAL DOSE ADMINISTERED THIS COURSE WAS 1800 MG
     Route: 042
     Dates: start: 20151020, end: 20151024

REACTIONS (1)
  - Embolism [Unknown]

NARRATIVE: CASE EVENT DATE: 20151110
